FAERS Safety Report 5026647-X (Version None)
Quarter: 2006Q2

REPORT INFORMATION
  Report Type: 
  Country: None (occurrence: None)
  Receive Date: 20060615
  Receipt Date: 20060614
  Transmission Date: 20061013
  Serious: Yes (Hospitalization)
  Sender: FDA-Public Use
  Company Number: US-GLAXOSMITHKLINE-A0608872A

PATIENT
  Age: 22 Year
  Sex: Female
  Weight: 82.7 kg

DRUGS (5)
  1. LAMOTRIGINE [Suspect]
     Dosage: 100MG TWICE PER DAY
     Route: 048
     Dates: start: 20060428
  2. TEGRETOL-XR [Suspect]
     Dosage: 400MG TWICE PER DAY
     Route: 048
     Dates: start: 20010101
  3. FOLIC ACID [Concomitant]
     Dosage: 1MG PER DAY
     Route: 048
  4. ZINC [Concomitant]
  5. SELENIUM SULFIDE [Concomitant]

REACTIONS (1)
  - ABORTION SPONTANEOUS [None]
